FAERS Safety Report 19758548 (Version 1)
Quarter: 2021Q3

REPORT INFORMATION
  Report Type: Spontaneous
  Country: SA (occurrence: SA)
  Receive Date: 20210828
  Receipt Date: 20210828
  Transmission Date: 20211014
  Serious: Yes (Death, Other)
  Sender: FDA-Public Use
  Company Number: NVSC2021SA194348

PATIENT

DRUGS (2)
  1. FLUDARABINE PHOSPHATE. [Suspect]
     Active Substance: FLUDARABINE PHOSPHATE
     Indication: ACUTE MYELOID LEUKAEMIA
     Dosage: 30 MG/M2,QD OVER 30 MINUTES (DAYS 1 TO 5)
     Route: 042
  2. CYTARABINE. [Suspect]
     Active Substance: CYTARABINE
     Indication: ACUTE MYELOID LEUKAEMIA
     Dosage: 2000 MG/M2, QD (OVER 4 HOURS)
     Route: 042

REACTIONS (6)
  - Lower respiratory tract infection [Unknown]
  - Product use in unapproved indication [Unknown]
  - Neutropenia [Unknown]
  - Mucosal inflammation [Unknown]
  - Septic shock [Fatal]
  - Febrile neutropenia [Fatal]
